FAERS Safety Report 8819397 (Version 1)
Quarter: 2012Q4

REPORT INFORMATION
  Report Type: Spontaneous
  Country: US (occurrence: None)
  Receive Date: 20121003
  Receipt Date: 20121003
  Transmission Date: 20130627
  Serious: Yes (Hospitalization, Other)
  Sender: FDA-Public Use
  Company Number: KV201200197

PATIENT
  Age: 25 Year
  Sex: Female

DRUGS (5)
  1. MAKENA [Suspect]
     Indication: PREMATURE DELIVERY
     Dosage: 250 mg, single, intramuscular
     Route: 030
     Dates: start: 20120921, end: 20120921
  2. COLACE (DOCUSATE SODIUM) [Concomitant]
  3. ZOFRAN (ONDANSETRON) [Concomitant]
  4. PRENATAL VITAMINS (ASCORBIC ACID, BIOTIN, MINERALS NOS, NICOTINIC ACID, RETINOL, TOCOPHEROL, VITAMIN B NOS, VITAMIN D NOS) [Concomitant]
  5. MACROBID (NITROFURANTOIN) [Concomitant]

REACTIONS (5)
  - Cervix enlargement [None]
  - Breech presentation [None]
  - Premature labour [None]
  - Caesarean section [None]
  - Exposure during pregnancy [None]
